FAERS Safety Report 5486967-1 (Version None)
Quarter: 2007Q4

REPORT INFORMATION
  Report Type: 
  Country: None (occurrence: None)
  Receive Date: 20071012
  Receipt Date: 20071012
  Transmission Date: 20080405
  Serious: No
  Sender: FDA-Public Use
  Company Number: None

PATIENT
  Age: 65 Year
  Sex: Male

DRUGS (2)
  1. AMOXICILLIN + CLAVULANATE POTASSIUM [Suspect]
     Indication: URINARY TRACT INFECTION
     Dosage: 250MG TID PO
     Route: 048
     Dates: start: 20070828, end: 20070902
  2. TRIMETHOPRIM-SULFAMETHOXAZOLE [Suspect]
     Dosage: 1TAB BID PO
     Route: 048
     Dates: start: 20070902, end: 20070905

REACTIONS (3)
  - CLOSTRIDIUM DIFFICILE COLITIS [None]
  - MULTI-ORGAN FAILURE [None]
  - RENAL FAILURE ACUTE [None]
